FAERS Safety Report 9689126 (Version 1)
Quarter: 2013Q4

REPORT INFORMATION
  Report Type: Spontaneous
  Country: US (occurrence: US)
  Receive Date: 20131114
  Receipt Date: 20131114
  Transmission Date: 20140711
  Serious: Yes (Other)
  Sender: FDA-Public Use
  Company Number: US-PFIZER INC-2013324642

PATIENT
  Age: 59 Year
  Sex: Male
  Weight: 72.56 kg

DRUGS (2)
  1. CHANTIX [Suspect]
     Indication: SMOKING CESSATION THERAPY
     Dosage: 0.5 MG, 1X/DAY
     Dates: start: 20110516, end: 2011
  2. SIMVASTATIN [Concomitant]
     Indication: CARDIAC DISORDER
     Dosage: UNK

REACTIONS (1)
  - Chronic obstructive pulmonary disease [Unknown]
